FAERS Safety Report 14515657 (Version 4)
Quarter: 2018Q4

REPORT INFORMATION
  Report Type: Spontaneous
  Country: US (occurrence: US)
  Receive Date: 20180210
  Receipt Date: 20181109
  Transmission Date: 20190204
  Serious: Yes (Other)
  Sender: FDA-Public Use
  Company Number: US-SHIRE-US201804946

PATIENT

DRUGS (1)
  1. GATTEX [Suspect]
     Active Substance: TEDUGLUTIDE\WATER
     Indication: SHORT-BOWEL SYNDROME
     Dosage: UNK
     Route: 065

REACTIONS (4)
  - Intestinal stenosis [Unknown]
  - Abdominal distension [Unknown]
  - Infection [Unknown]
  - Stoma obstruction [Unknown]
